FAERS Safety Report 14494944 (Version 2)
Quarter: 2018Q1

REPORT INFORMATION
  Report Type: Spontaneous
  Country: JP (occurrence: JP)
  Receive Date: 20180206
  Receipt Date: 20180209
  Transmission Date: 20180509
  Serious: Yes (Life-Threatening, Hospitalization, Other)
  Sender: FDA-Public Use
  Company Number: JP-MYLANLABS-2018M1007367

PATIENT
  Age: 49 Year
  Sex: Female

DRUGS (1)
  1. AMIODARONE [Suspect]
     Active Substance: AMIODARONE
     Indication: VENTRICULAR TACHYCARDIA
     Dosage: 100MG/DAY
     Route: 065

REACTIONS (6)
  - Cardio-respiratory arrest [Recovered/Resolved]
  - Diaphragmatic paralysis [Recovered/Resolved]
  - Loss of consciousness [Recovered/Resolved]
  - Hyperthyroidism [Recovered/Resolved]
  - Respiratory muscle weakness [Recovered/Resolved]
  - Carbon dioxide increased [Recovered/Resolved]
